FAERS Safety Report 6210880-5 (Version None)
Quarter: 2009Q2

REPORT INFORMATION
  Report Type: 
  Country: None (occurrence: None)
  Receive Date: 20090527
  Receipt Date: 20090515
  Transmission Date: 20091009
  Serious: Yes (Other)
  Sender: FDA-Public Use
  Company Number: 235505K09USA

PATIENT
  Age: 61 Year
  Sex: Male
  Weight: 90 kg

DRUGS (10)
  1. REBIF [Suspect]
     Indication: MULTIPLE SCLEROSIS
     Dosage: 22 MCG, 3 IN 1 WEEKS, SUBCUTANEOUS
     Route: 058
     Dates: start: 20041018
  2. LIPITOR [Concomitant]
  3. ACTONEL [Concomitant]
  4. PENTOXIFYLLINE [Concomitant]
  5. TRAZODONE HCL [Concomitant]
  6. VITAMIN D [Concomitant]
  7. VITAMIN B12 [Concomitant]
  8. LOW DOSE ASPIRIN (ACETYLSALICYLI C ACID) [Concomitant]
  9. CENTRUM SILVER (CENTRUM SILVER) [Concomitant]
  10. FISH OIL (FISH OIL) [Concomitant]

REACTIONS (2)
  - AORTIC DISORDER [None]
  - ARTERIAL OCCLUSIVE DISEASE [None]
